FAERS Safety Report 19315811 (Version 1)
Quarter: 2021Q2

REPORT INFORMATION
  Report Type: Spontaneous
  Country: TH (occurrence: TH)
  Receive Date: 20210527
  Receipt Date: 20210527
  Transmission Date: 20210717
  Serious: Yes (Death, Hospitalization)
  Sender: FDA-Public Use
  Company Number: TH-B.I. PHARMACEUTICALS,INC./RIDGEFIELD-2021-BI-105757

PATIENT
  Age: 57 Year
  Sex: Female

DRUGS (1)
  1. OFEV [Suspect]
     Active Substance: NINTEDANIB
     Indication: RHEUMATOID ARTHRITIS-ASSOCIATED INTERSTITIAL LUNG DISEASE
     Dosage: OFEV 150 MG 1 CAPSULE BID ORALLY
     Route: 048
     Dates: start: 202009

REACTIONS (1)
  - Condition aggravated [Fatal]

NARRATIVE: CASE EVENT DATE: 202103
